FAERS Safety Report 5520405-5 (Version None)
Quarter: 2007Q4

REPORT INFORMATION
  Report Type: 
  Country: None (occurrence: None)
  Receive Date: 20071114
  Receipt Date: 20071030
  Transmission Date: 20080405
  Serious: Yes (Other)
  Sender: FDA-Public Use
  Company Number: DSA_30841_2007

PATIENT
  Sex: Female
  Weight: 81.6475 kg

DRUGS (3)
  1. VASOTEC [Suspect]
     Indication: HYPERTENSION
     Dosage: (DF ORAL)
     Route: 048
     Dates: start: 19990721, end: 19990811
  2. DETROL [Suspect]
     Indication: DRUG USE FOR UNKNOWN INDICATION
     Dosage: (DF)
  3. COUMADIN [Concomitant]

REACTIONS (10)
  - BLOOD PRESSURE DECREASED [None]
  - BLOOD PRESSURE INADEQUATELY CONTROLLED [None]
  - BLOOD PRESSURE INCREASED [None]
  - CARDIAC MURMUR [None]
  - CEREBROVASCULAR ACCIDENT [None]
  - CONDITION AGGRAVATED [None]
  - CONFUSIONAL STATE [None]
  - DEMENTIA [None]
  - DEPRESSED LEVEL OF CONSCIOUSNESS [None]
  - MEMORY IMPAIRMENT [None]
